FAERS Safety Report 20049356 (Version 1)
Quarter: 2021Q4

REPORT INFORMATION
  Report Type: Spontaneous
  Country: US (occurrence: None)
  Receive Date: 20211109
  Receipt Date: 20211109
  Transmission Date: 20220303
  Serious: Yes (Death, Life-Threatening)
  Sender: FDA-Public Use
  Company Number: None

PATIENT
  Age: 20 Year
  Sex: Female
  Weight: 54 kg

DRUGS (5)
  1. LAMOTRIGINE KIT [Suspect]
     Active Substance: LAMOTRIGINE
     Indication: Epilepsy
     Route: 048
     Dates: start: 20201008, end: 20201031
  2. KEPPRA [Concomitant]
     Active Substance: LEVETIRACETAM
  3. LAMOTRIGINE [Concomitant]
     Active Substance: LAMOTRIGINE
  4. ASPIRIN [Concomitant]
     Active Substance: ASPIRIN
  5. FLINTSTONE GUMMY VITAMINS [Concomitant]

REACTIONS (2)
  - Ventricular failure [None]
  - Cardiac failure [None]

NARRATIVE: CASE EVENT DATE: 20201101
